FAERS Safety Report 8239721-1 (Version None)
Quarter: 2012Q1

REPORT INFORMATION
  Report Type: 
  Country: None (occurrence: None)
  Receive Date: 20120328
  Receipt Date: 20120319
  Transmission Date: 20120608
  Serious: Yes (Other)
  Sender: FDA-Public Use
  Company Number: US-JNJFOC-20120310051

PATIENT
  Sex: Female

DRUGS (6)
  1. TRASTUZUMAB [Suspect]
     Dosage: EVERY 3 WEEKS TO COMPLETE 1 YEAR OF TRASTUZUMAB
     Route: 065
  2. DOXORUBICIN HYDROCHLORIDE [Suspect]
     Indication: BREAST CANCER
     Dosage: EVERY 3 WEEKS FOR 4 CYCLES
     Route: 042
  3. CYCLOPHOSPHAMIDE [Suspect]
     Indication: BREAST CANCER
     Dosage: EVERY 3 WEEKS FOR 4 CYCLES
     Route: 065
  4. DOCETAXEL [Suspect]
     Indication: BREAST CANCER
     Dosage: EVERY 3 WEEKS FOR FOUR DOSES (AC-T)
     Route: 065
  5. TRASTUZUMAB [Suspect]
     Dosage: WITH FIRST DOSE OF DOCITAXEL
     Route: 065
  6. TRASTUZUMAB [Suspect]
     Indication: BREAST CANCER
     Dosage: DURING CHEMOTHERAPY
     Route: 065

REACTIONS (1)
  - ACUTE LEUKAEMIA [None]
